FAERS Safety Report 9708194 (Version 1)
Quarter: 2013Q4

REPORT INFORMATION
  Report Type: Spontaneous
  Country: NL (occurrence: None)
  Receive Date: 20131121
  Receipt Date: 20131121
  Transmission Date: 20140711
  Serious: Yes (Other)
  Sender: FDA-Public Use
  Company Number: 2013AP009848

PATIENT
  Age: 36 Year
  Sex: Male

DRUGS (5)
  1. QUETIAPINE (QUETIAPINE) [Suspect]
  2. VENLAFAXINE (VENLAFAXINE) [Concomitant]
  3. PROMETHAZINE (PROMETHAZINE) [Concomitant]
  4. LORAZEPAM (LORAZEPAM) [Concomitant]
  5. TEMAZEPAM (TEMAZEPAM) [Concomitant]

REACTIONS (2)
  - Secondary adrenocortical insufficiency [None]
  - Hypothyroidism [None]
